FAERS Safety Report 20755068 (Version 1)
Quarter: 2022Q2

REPORT INFORMATION
  Report Type: Report from Study
  Country: US (occurrence: US)
  Receive Date: 20220427
  Receipt Date: 20220427
  Transmission Date: 20220720
  Serious: Yes (Hospitalization, Other)
  Sender: FDA-Public Use
  Company Number: US-BRISTOL-MYERS SQUIBB COMPANY-2022-013473

PATIENT
  Age: 75 Year
  Sex: Male
  Weight: 107.5 kg

DRUGS (3)
  1. CARBOPLATIN [Suspect]
     Active Substance: CARBOPLATIN
     Indication: Anal cancer
     Route: 065
     Dates: start: 20220211, end: 20220211
  2. PACLITAXEL [Suspect]
     Active Substance: PACLITAXEL
     Indication: Anal cancer
     Route: 065
     Dates: start: 20220211, end: 20220225
  3. NIVOLUMAB [Suspect]
     Active Substance: NIVOLUMAB
     Indication: Anal cancer
     Route: 065
     Dates: start: 20220211, end: 20220211

REACTIONS (3)
  - Stomatitis [Not Recovered/Not Resolved]
  - Ear pain [Not Recovered/Not Resolved]
  - Influenza like illness [Not Recovered/Not Resolved]

NARRATIVE: CASE EVENT DATE: 20220307
